FAERS Safety Report 7490288 (Version 26)
Quarter: 2013Q1

REPORT INFORMATION
  Report Type: Spontaneous
  Country: CA (occurrence: CA)
  Receive Date: 20100720
  Receipt Date: 20130225
  Transmission Date: 20140127
  Serious: Yes (Other)
  Sender: FDA-Public Use
  Company Number: PHHY2009CA42077

PATIENT
  Sex: Female

DRUGS (7)
  1. SANDOSTATIN LAR [Suspect]
     Indication: PANCREATIC NEUROENDOCRINE TUMOUR METASTATIC
     Dosage: 30 MG, EVERY 4 WEEKS
     Route: 030
     Dates: start: 20090707
  2. SANDOSTATIN LAR [Suspect]
     Dosage: 40 MG EVERY 4 WEEKS
     Route: 030
     Dates: start: 20090707
  3. SANDOSTATIN LAR [Suspect]
     Dosage: 40 MG, QMO
     Route: 030
     Dates: start: 20090707
  4. SANDOSTATIN LAR [Suspect]
     Dosage: 40 MG, TIW
     Route: 030
  5. SANDOSTATIN LAR [Suspect]
     Dosage: 40 MG, QMO
     Route: 030
  6. SANDOSTATIN LAR [Suspect]
     Dosage: 30 MG, EVERY 3 WEEKS
     Route: 030
  7. SANDOSTATIN LAR [Suspect]
     Dosage: 30 MG EVERY 4 WEEKS
     Route: 030

REACTIONS (11)
  - Blood pressure increased [Unknown]
  - Hepatic pain [Unknown]
  - Blood pressure systolic increased [Unknown]
  - Stress [Unknown]
  - Feeling abnormal [Unknown]
  - Heart rate increased [Unknown]
  - Decreased appetite [Unknown]
  - Headache [Unknown]
  - Abdominal discomfort [Unknown]
  - Abdominal pain [Unknown]
  - Diarrhoea [Unknown]
